FAERS Safety Report 24006819 (Version 1)
Quarter: 2024Q2

REPORT INFORMATION
  Report Type: Other
  Country: US (occurrence: JP)
  Receive Date: 20240624
  Receipt Date: 20240624
  Transmission Date: 20240716
  Serious: Yes (Hospitalization, Other)
  Sender: FDA-Public Use
  Company Number: JP-Saptalis Pharmaceuticals LLC-2158482

PATIENT
  Age: 84 Year
  Sex: Male
  Weight: 60 kg

DRUGS (2)
  1. LIKMEZ [Suspect]
     Active Substance: METRONIDAZOLE
     Indication: Liver abscess
  2. CEFTRIAXONE [Concomitant]
     Active Substance: CEFTRIAXONE\CEFTRIAXONE SODIUM

REACTIONS (3)
  - Gait disturbance [Recovered/Resolved]
  - Toxic encephalopathy [Recovered/Resolved with Sequelae]
  - Dysaesthesia [Not Recovered/Not Resolved]
